FAERS Safety Report 6356785-0 (Version None)
Quarter: 2009Q3

REPORT INFORMATION
  Report Type: 
  Country: None (occurrence: None)
  Receive Date: 20090915
  Receipt Date: 20090909
  Transmission Date: 20100115
  Serious: Yes (Death, Hospitalization)
  Sender: FDA-Public Use
  Company Number: JP-ELI_LILLY_AND_COMPANY-JP200908006421

PATIENT
  Sex: Male
  Weight: 72 kg

DRUGS (19)
  1. ALIMTA [Suspect]
     Indication: LUNG ADENOCARCINOMA STAGE IV
     Dosage: 500 MG/M2, OTHER
     Route: 042
     Dates: start: 20090616, end: 20090722
  2. CISPLATIN [Concomitant]
     Indication: LUNG ADENOCARCINOMA STAGE IV
     Dosage: 70 MG/M2, OTHER
     Route: 042
     Dates: start: 20090616, end: 20090722
  3. PANVITAN [Concomitant]
     Dosage: 1 G, UNKNOWN
     Route: 048
     Dates: start: 20090609
  4. METHYCOBAL [Concomitant]
     Dosage: 1 MG, UNKNOWN
     Route: 030
     Dates: start: 20090609, end: 20090811
  5. METHYCOBAL [Concomitant]
     Dosage: 1 MG, UNKNOWN
     Route: 030
     Dates: start: 20090811
  6. OXYCONTIN [Concomitant]
     Dosage: 20 MG, 2/D
     Route: 048
  7. BEZATOL [Concomitant]
     Dosage: 200 MG, DAILY (1/D)
     Route: 048
  8. DEPAS [Concomitant]
     Dosage: 0.5 MG, 4/D
     Route: 048
  9. NOVAMIN [Concomitant]
     Dosage: 5 MG, 3/D
     Route: 048
  10. LEUCON [Concomitant]
     Dosage: 20 MG, 3/D
     Route: 048
  11. MAGNESIUM OXIDE [Concomitant]
     Dosage: 0.5 G, 3/D
     Route: 048
  12. MUCOSTA [Concomitant]
     Dosage: UNK, UNKNOWN
     Route: 048
  13. HYPEN [Concomitant]
     Dosage: 200 MG, 2/D
     Route: 048
     Dates: start: 20090620
  14. TEGRETOL [Concomitant]
     Dosage: 200 MG, 2/D
     Route: 048
     Dates: start: 20090620
  15. GASTER D [Concomitant]
     Dosage: 20 MG, 2/D
     Route: 048
     Dates: start: 20090623
  16. PAXIL [Concomitant]
     Dosage: 20 MG, DAILY (1/D)
     Dates: start: 20090623
  17. ATARAX [Concomitant]
     Dosage: 25 MG, 3/D
     Route: 048
     Dates: start: 20090625
  18. DUROTEP [Concomitant]
     Dosage: 4.2 MG, 3/D
     Route: 062
     Dates: start: 20090630
  19. ALLOID G [Concomitant]
     Dosage: 10 ML, 3/D
     Route: 048
     Dates: start: 20090702

REACTIONS (4)
  - BONE MARROW FAILURE [None]
  - INJECTION SITE EXTRAVASATION [None]
  - INTERSTITIAL LUNG DISEASE [None]
  - STAPHYLOCOCCAL SEPSIS [None]
